FAERS Safety Report 16328640 (Version 1)
Quarter: 2019Q2

REPORT INFORMATION
  Report Type: Spontaneous
  Country: US (occurrence: US)
  Receive Date: 20190518
  Receipt Date: 20190518
  Transmission Date: 20190711
  Serious: Yes (Other)
  Sender: FDA-Public Use
  Company Number: PHEH2019US021339

PATIENT
  Sex: Female

DRUGS (3)
  1. GLEEVEC [Suspect]
     Active Substance: IMATINIB MESYLATE
     Indication: CHRONIC MYELOID LEUKAEMIA
     Dosage: 400 MG, UNK
     Route: 048
     Dates: start: 2001
  2. GLEEVEC [Suspect]
     Active Substance: IMATINIB MESYLATE
     Dosage: 200 MG, UNK
     Route: 048
     Dates: start: 20060601
  3. TASIGNA [Suspect]
     Active Substance: NILOTINIB
     Indication: CHRONIC MYELOID LEUKAEMIA
     Dosage: 2 DF, BID
     Route: 048
     Dates: start: 20170706

REACTIONS (43)
  - Duodenal ulcer [Unknown]
  - Thrombosis [Unknown]
  - Nasal congestion [Unknown]
  - Vitamin B12 deficiency [Unknown]
  - Anaemia [Unknown]
  - Hypoaesthesia [Unknown]
  - Diarrhoea [Unknown]
  - Fatigue [Unknown]
  - Colon cancer [Unknown]
  - Deep vein thrombosis [Unknown]
  - Cardiac murmur [Unknown]
  - Rhinitis [Unknown]
  - Hypokalaemia [Unknown]
  - Upper gastrointestinal haemorrhage [Unknown]
  - Cataract [Unknown]
  - Oedema peripheral [Unknown]
  - Oropharyngeal pain [Unknown]
  - Joint swelling [Unknown]
  - Gastrooesophageal reflux disease [Unknown]
  - Anxiety [Unknown]
  - Gastritis [Unknown]
  - Haematochezia [Unknown]
  - Obesity [Unknown]
  - Gastroenteritis [Unknown]
  - Peripheral swelling [Unknown]
  - Hyponatraemia [Unknown]
  - Hypothyroidism [Unknown]
  - Depression [Unknown]
  - Rheumatic fever [Unknown]
  - Irritable bowel syndrome [Unknown]
  - Dysuria [Unknown]
  - Colitis [Unknown]
  - Hypertension [Unknown]
  - Diverticulum [Unknown]
  - Arthritis [Unknown]
  - Peripheral vascular disorder [Unknown]
  - Peripheral arterial occlusive disease [Unknown]
  - Arterial occlusive disease [Unknown]
  - Asthenia [Unknown]
  - Gastric ulcer [Unknown]
  - Goitre [Unknown]
  - Hyperinsulinism [Unknown]
  - Upper respiratory tract infection [Unknown]
